FAERS Safety Report 4719231-6 (Version None)
Quarter: 2005Q3

REPORT INFORMATION
  Report Type: 
  Country: None (occurrence: None)
  Receive Date: 20050719
  Receipt Date: 20050719
  Transmission Date: 20060218
  Serious: No
  Sender: FDA-Public Use
  Company Number: None

PATIENT

DRUGS (5)
  1. THYROID TAB [Suspect]
     Dosage: ORAL
     Route: 048
     Dates: start: 20050201
  2. PROTON PUMP INHIBITOR [Concomitant]
  3. CLONOPIN [Concomitant]
  4. LOZOL [Concomitant]
  5. DIAZIDE [Concomitant]

REACTIONS (1)
  - CARDIAC DISORDER [None]
